FAERS Safety Report 7199200-X (Version None)
Quarter: 2010Q4

REPORT INFORMATION
  Report Type: 
  Country: None (occurrence: None)
  Receive Date: 20101228
  Receipt Date: 20101214
  Transmission Date: 20110411
  Serious: Yes (Hospitalization, Other)
  Sender: FDA-Public Use
  Company Number: PHHY2010NL87294

PATIENT
  Age: 53 Year
  Sex: Male

DRUGS (7)
  1. CLOZAPINE [Suspect]
     Indication: SCHIZOAFFECTIVE DISORDER
     Dosage: 25 MG
  2. CLOZAPINE [Suspect]
     Dosage: 350 MG
  3. CLOZAPINE [Suspect]
     Dosage: 600 MG
  4. CLOZAPINE [Suspect]
     Dosage: 400 MG
  5. VALPROATE SODIUM [Concomitant]
     Dosage: 2500 MG, UNK
  6. METOPROLOL TARTRATE [Concomitant]
     Dosage: 50 MG, UNK
  7. LORAZEPAM [Concomitant]
     Dosage: 3 MG, UNK

REACTIONS (12)
  - ABDOMINAL DISCOMFORT [None]
  - ANTIPSYCHOTIC DRUG LEVEL BELOW THERAPEUTIC [None]
  - ANTIPSYCHOTIC DRUG LEVEL INCREASED [None]
  - C-REACTIVE PROTEIN INCREASED [None]
  - CHOLECYSTITIS [None]
  - CHOLELITHIASIS [None]
  - CONSTIPATION [None]
  - DELIRIUM [None]
  - GALLSTONE ILEUS [None]
  - INTESTINAL FISTULA [None]
  - LEUKOCYTOSIS [None]
  - TACHYCARDIA [None]
